FAERS Safety Report 7332870-1 (Version None)
Quarter: 2011Q1

REPORT INFORMATION
  Report Type: 
  Country: None (occurrence: None)
  Receive Date: 20110304
  Receipt Date: 20110228
  Transmission Date: 20110831
  Serious: Yes (Hospitalization, Other)
  Sender: FDA-Public Use
  Company Number: US-PFIZER INC-2005107300

PATIENT
  Sex: Female

DRUGS (3)
  1. NEURONTIN [Suspect]
     Dosage: 300 MG, UNK
     Dates: start: 20010222, end: 20060427
  2. NEURONTIN [Suspect]
     Dosage: 200 MG, UNK
     Dates: start: 19991202, end: 19991216
  3. NEURONTIN [Suspect]
     Dosage: 1800 MG, UNK
     Dates: start: 19980925

REACTIONS (5)
  - DRUG INEFFECTIVE [None]
  - MENTAL STATUS CHANGES [None]
  - SUICIDE ATTEMPT [None]
  - DEPRESSION [None]
  - APATHY [None]
